FAERS Safety Report 6059248-5 (Version None)
Quarter: 2009Q1

REPORT INFORMATION
  Report Type: 
  Country: None (occurrence: None)
  Receive Date: 20090130
  Receipt Date: 20090126
  Transmission Date: 20090719
  Serious: Yes (Other)
  Sender: FDA-Public Use
  Company Number: IE-MERCK-0901GBR00081

PATIENT
  Age: 24 Month
  Sex: Male

DRUGS (1)
  1. SINGULAIR [Suspect]
     Route: 048

REACTIONS (2)
  - FEELING ABNORMAL [None]
  - NIGHTMARE [None]
